FAERS Safety Report 4880712-6 (Version None)
Quarter: 2006Q1

REPORT INFORMATION
  Report Type: 
  Country: None (occurrence: None)
  Receive Date: 20060113
  Receipt Date: 20060106
  Transmission Date: 20060701
  Serious: Yes (Hospitalization)
  Sender: FDA-Public Use
  Company Number: FR-MERCK-0601FRA00024

PATIENT
  Age: 74 Year
  Sex: Male

DRUGS (4)
  1. PRIMAXIN [Suspect]
     Route: 042
     Dates: start: 20051119, end: 20051202
  2. CANDESARTAN CILEXETIL [Suspect]
     Indication: HYPERTENSION
     Route: 048
     Dates: start: 20051123, end: 20051202
  3. FUSIDATE SODIUM [Suspect]
     Route: 042
     Dates: start: 20051119, end: 20051202
  4. VANCOMYCIN [Concomitant]
     Route: 042
     Dates: start: 20051119, end: 20051129

REACTIONS (4)
  - BASOPHIL COUNT INCREASED [None]
  - HYPOTENSION [None]
  - PYREXIA [None]
  - RASH MORBILLIFORM [None]
